FAERS Safety Report 9620810 (Version 2)
Quarter: 2013Q4

REPORT INFORMATION
  Report Type: Spontaneous
  Country: BR (occurrence: BR)
  Receive Date: 20131015
  Receipt Date: 20131015
  Transmission Date: 20140711
  Serious: Yes (Life-Threatening)
  Sender: FDA-Public Use
  Company Number: BR-BRISTOL-MYERS SQUIBB COMPANY-19597533

PATIENT
  Age: 0 None
  Sex: Female
  Weight: 2.93 kg

DRUGS (3)
  1. ABILIFY TABS 30 MG [Suspect]
     Dosage: LAST DOSE ON 11NOV12
     Route: 064
     Dates: start: 20121010
  2. LAMOTRIGINE [Concomitant]
     Dosage: LAST DOSE ADMINISTERED ON 11-NOV-2012 AND INTERRUPTED
     Route: 064
  3. ALPRAZOLAM [Concomitant]
     Route: 064
     Dates: start: 20121103

REACTIONS (2)
  - Respiratory disorder [Recovering/Resolving]
  - Dyschezia [Unknown]
